FAERS Safety Report 18771481 (Version 1)
Quarter: 2021Q1

REPORT INFORMATION
  Report Type: Spontaneous
  Country: US (occurrence: US)
  Receive Date: 20210121
  Receipt Date: 20210121
  Transmission Date: 20210419
  Serious: No
  Sender: FDA-Public Use
  Company Number: US-PERRIGO-20US013104

PATIENT
  Age: 68 Year
  Sex: Female
  Weight: 73.92 kg

DRUGS (2)
  1. ACETAMINOPHEN. [Suspect]
     Active Substance: ACETAMINOPHEN
     Indication: SCIATICA
     Dosage: 650 MG, NIGHTLY, PRN
     Route: 048
     Dates: end: 20200905
  2. IBUPROFEN. [Suspect]
     Active Substance: IBUPROFEN
     Indication: SCIATICA
     Dosage: 400 MG, NIGHTLY, PRN
     Route: 048
     Dates: end: 20200905

REACTIONS (4)
  - Tremor [Recovered/Resolved]
  - Off label use [Recovered/Resolved]
  - Nervousness [Recovered/Resolved]
  - Feeling jittery [Recovered/Resolved]

NARRATIVE: CASE EVENT DATE: 20200826
